FAERS Safety Report 9011889 (Version 2)
Quarter: 2013Q2

REPORT INFORMATION
  Report Type: Report from Study
  Country: DE (occurrence: DE)
  Receive Date: 20130114
  Receipt Date: 20130527
  Transmission Date: 20140414
  Serious: Yes (Hospitalization, Other)
  Sender: FDA-Public Use
  Company Number: DE-BIOGENIDEC-2013BI000980

PATIENT
  Age: 45 Year
  Sex: Female

DRUGS (3)
  1. TYSABRI [Suspect]
     Indication: MULTIPLE SCLEROSIS
     Route: 042
     Dates: start: 20080327, end: 20090110
  2. MITOXANTRONE [Concomitant]
     Indication: MULTIPLE SCLEROSIS
     Dates: start: 20090227, end: 20100310
  3. CARBAMAZEPIN [Concomitant]

REACTIONS (1)
  - Gastrointestinal carcinoma [Not Recovered/Not Resolved]
